FAERS Safety Report 9317826 (Version 3)
Quarter: 2013Q2

REPORT INFORMATION
  Report Type: Report from Study
  Country: JP (occurrence: JP)
  Receive Date: 20130530
  Receipt Date: 20130621
  Transmission Date: 20140414
  Serious: Yes (Hospitalization)
  Sender: FDA-Public Use
  Company Number: JP-OTSUKA-JP-2013-11689

PATIENT
  Age: 49 Year
  Sex: Male
  Weight: 74 kg

DRUGS (5)
  1. SAMSCA [Suspect]
     Indication: FLUID RETENTION
     Dosage: 7.5 MG MILLIGRAM(S), QAM
     Route: 048
     Dates: start: 20130423, end: 20130510
  2. LASIX [Concomitant]
     Indication: CARDIAC FAILURE
     Dosage: 20 MG MILLIGRAM(S), DAILY DOSE
     Route: 048
  3. REVATIO [Concomitant]
     Dosage: 60 MG MILLIGRAM(S), DAILY DOSE
     Route: 048
  4. WARFARIN K [Concomitant]
     Dosage: 1 MG MILLIGRAM(S), DAILY DOSE
     Route: 048
     Dates: start: 20130423, end: 20130425
  5. WARFARIN K [Concomitant]
     Dosage: 1.5 MG MILLIGRAM(S), DAILY DOSE
     Route: 048
     Dates: start: 20130426

REACTIONS (3)
  - Weight increased [Recovering/Resolving]
  - Thirst [Recovered/Resolved]
  - Hypernatraemia [Recovered/Resolved]
